FAERS Safety Report 23096409 (Version 1)
Quarter: 2023Q4

REPORT INFORMATION
  Report Type: Spontaneous
  Country: FR (occurrence: FR)
  Receive Date: 20231023
  Receipt Date: 20231023
  Transmission Date: 20240110
  Serious: Yes (Hospitalization, Other)
  Sender: FDA-Public Use
  Company Number: None

PATIENT

DRUGS (12)
  1. SUBUTEX [Suspect]
     Active Substance: BUPRENORPHINE HYDROCHLORIDE
     Indication: Product used for unknown indication
     Dosage: UNK
     Route: 042
  2. SUBUTEX [Suspect]
     Active Substance: BUPRENORPHINE HYDROCHLORIDE
     Dosage: UNK
     Route: 060
     Dates: start: 20220216, end: 20220216
  3. OXAZEPAM [Suspect]
     Active Substance: OXAZEPAM
     Indication: Product used for unknown indication
     Dosage: 50 MILLIGRAM, UNK
     Route: 042
  4. OXAZEPAM [Suspect]
     Active Substance: OXAZEPAM
     Dosage: 250 AND 500MG/D
     Route: 048
  5. MIDOMAFETAMINE [Suspect]
     Active Substance: MIDOMAFETAMINE
     Indication: Product used for unknown indication
     Dosage: UNK
     Route: 065
  6. KETAMINE [Suspect]
     Active Substance: KETAMINE
     Indication: Product used for unknown indication
     Dosage: UNK
     Route: 065
  7. TOBACCO LEAF [Suspect]
     Active Substance: TOBACCO LEAF
     Indication: Product used for unknown indication
     Dosage: 30 ROLLED CIGS PER DAY
     Dates: start: 1999
  8. XANAX [Suspect]
     Active Substance: ALPRAZOLAM
     Indication: Product used for unknown indication
     Dosage: 0.5 MG (BETWEEN 1.5 AND 5MG/D)
     Route: 048
  9. XANAX [Suspect]
     Active Substance: ALPRAZOLAM
     Dosage: UNK
     Route: 042
  10. XANAX [Suspect]
     Active Substance: ALPRAZOLAM
     Dosage: 20 MILLIGRAM, UNKNOWN (0.50 MG SCORED TABLET)
     Route: 048
     Dates: start: 20220216, end: 20220216
  11. ALCOHOL [Suspect]
     Active Substance: ALCOHOL
     Indication: Product used for unknown indication
     Dosage: UP TO 32 US/D
     Route: 048
     Dates: start: 2001
  12. ALCOHOL [Suspect]
     Active Substance: ALCOHOL
     Dosage: UNK (ALCOHOL DRINK)
     Route: 048
     Dates: start: 20220216, end: 20220216

REACTIONS (9)
  - Off label use [Not Recovered/Not Resolved]
  - Suicidal ideation [Recovering/Resolving]
  - Poisoning deliberate [Recovered/Resolved]
  - Amnesia [Recovered/Resolved]
  - Road traffic accident [Recovered/Resolved]
  - Confusional state [Recovered/Resolved]
  - Toxicity to various agents [Recovered/Resolved]
  - Drug abuse [Not Recovered/Not Resolved]
  - Agitation [Recovered/Resolved]

NARRATIVE: CASE EVENT DATE: 20210101
